FAERS Safety Report 24284925 (Version 5)
Quarter: 2025Q3

REPORT INFORMATION
  Report Type: Spontaneous
  Country: US (occurrence: US)
  Receive Date: 20240905
  Receipt Date: 20250901
  Transmission Date: 20251020
  Serious: Yes (Hospitalization)
  Sender: SANOFI AVENTIS
  Company Number: US-SA-2024SA256622

PATIENT
  Age: 54 Year
  Sex: Female

DRUGS (26)
  1. DUPIXENT [Suspect]
     Active Substance: DUPILUMAB
     Indication: Idiopathic urticaria
     Dosage: 300 MG, QOW
     Route: 058
     Dates: start: 20240403
  2. DUPIXENT [Suspect]
     Active Substance: DUPILUMAB
     Indication: Asthma
  3. BUDESONIDE [Concomitant]
     Active Substance: BUDESONIDE
  4. MONTELUKAST [Concomitant]
     Active Substance: MONTELUKAST
  5. ONDANSETRON [Concomitant]
     Active Substance: ONDANSETRON
  6. PREDNISONE [Concomitant]
     Active Substance: PREDNISONE
  7. SIMVASTATIN [Concomitant]
     Active Substance: SIMVASTATIN
  8. HYDROCHLOROTHIAZIDE [Concomitant]
     Active Substance: HYDROCHLOROTHIAZIDE
  9. LISINOPRIL [Concomitant]
     Active Substance: LISINOPRIL
  10. METHYLPREDNISOLONE [Concomitant]
     Active Substance: METHYLPREDNISOLONE
  11. QVAR REDIHALER [Concomitant]
     Active Substance: BECLOMETHASONE DIPROPIONATE
  12. TEZSPIRE [Concomitant]
     Active Substance: TEZEPELUMAB-EKKO
  13. AZITHROMYCIN [Concomitant]
     Active Substance: AZITHROMYCIN
  14. CALCIUM [Concomitant]
     Active Substance: CALCIUM
  15. TEZSPIRE [Concomitant]
     Active Substance: TEZEPELUMAB-EKKO
  16. METHYLPREDNISOLONE [Concomitant]
     Active Substance: METHYLPREDNISOLONE
  17. FISH OIL [Concomitant]
     Active Substance: FISH OIL
  18. CETIRIZINE [Concomitant]
     Active Substance: CETIRIZINE HYDROCHLORIDE
  19. STIOLTO RESPIMAT [Concomitant]
     Active Substance: OLODATEROL HYDROCHLORIDE\TIOTROPIUM BROMIDE MONOHYDRATE
  20. ARNUITY ELLIPTA [Concomitant]
     Active Substance: FLUTICASONE FUROATE
  21. VITAMINS [Concomitant]
     Active Substance: VITAMINS
  22. VITAMIN E [Concomitant]
     Active Substance: .ALPHA.-TOCOPHEROL
  23. BUDESONIDE [Concomitant]
     Active Substance: BUDESONIDE
  24. HYDROCHLOROTHIAZIDE [Concomitant]
     Active Substance: HYDROCHLOROTHIAZIDE
  25. GLUCOSAMINE [Concomitant]
     Active Substance: GLUCOSAMINE
  26. MONTELUKAST SODIUM [Concomitant]
     Active Substance: MONTELUKAST SODIUM

REACTIONS (5)
  - Surgery [Unknown]
  - Hospitalisation [Unknown]
  - Asthma [Recovering/Resolving]
  - Impaired quality of life [Not Recovered/Not Resolved]
  - Product use in unapproved indication [Unknown]

NARRATIVE: CASE EVENT DATE: 20240101
